FAERS Safety Report 5358411-6 (Version None)
Quarter: 2007Q2

REPORT INFORMATION
  Report Type: 
  Country: None (occurrence: None)
  Receive Date: 20070530
  Receipt Date: 20070111
  Transmission Date: 20071010
  Serious: Yes (Other)
  Sender: FDA-Public Use
  Company Number: US200601001294

PATIENT
  Age: 38 Year
  Sex: Female
  Weight: 163.3 kg

DRUGS (11)
  1. ZYPREXA [Suspect]
     Indication: BIPOLAR DISORDER
     Dosage: SEE IMAGE
     Dates: start: 20010825
  2. DEPAKOTE [Concomitant]
  3. WARFARIN SODIUM [Concomitant]
  4. HABITROL [Concomitant]
  5. FUROSEMIDE [Concomitant]
  6. CLARITIN /USA/ (LORATADINE) [Concomitant]
  7. POTASSIUM CHLORIDE [Concomitant]
  8. AMBIEN [Concomitant]
  9. DETROL [Concomitant]
  10. GEODON [Concomitant]
  11. CLONAZEPAM [Concomitant]

REACTIONS (4)
  - DIABETES MELLITUS [None]
  - DIABETIC NEUROPATHY [None]
  - PRESCRIBED OVERDOSE [None]
  - WEIGHT INCREASED [None]
